FAERS Safety Report 6687615-5 (Version None)
Quarter: 2010Q2

REPORT INFORMATION
  Report Type: 
  Country: None (occurrence: None)
  Receive Date: 20100414
  Receipt Date: 20100330
  Transmission Date: 20101027
  Serious: Yes (Hospitalization)
  Sender: FDA-Public Use
  Company Number: 009467

PATIENT
  Age: 58 Year
  Sex: Male

DRUGS (4)
  1. EDEX [Suspect]
     Dosage: (SINGLE DOSE INTRACAVERNOUS)
     Route: 042
     Dates: start: 20091231, end: 20091231
  2. COAPROVEL [Concomitant]
  3. LERCAN [Concomitant]
  4. TETRAZEPAM [Concomitant]

REACTIONS (3)
  - CEREBRAL HAEMATOMA [None]
  - HAEMORRHAGIC STROKE [None]
  - HYPERTENSION [None]
